FAERS Safety Report 8808907 (Version 1)
Quarter: 2012Q4

REPORT INFORMATION
  Report Type: Spontaneous
  Country: US (occurrence: None)
  Receive Date: 20120920
  Receipt Date: 20120920
  Transmission Date: 20130627
  Serious: Yes (Other)
  Sender: FDA-Public Use
  Company Number: None

PATIENT
  Age: 69 Year
  Sex: Female
  Weight: 61.24 kg

DRUGS (1)
  1. CRESTOR [Suspect]
     Indication: HIGH CHOLESTEROL
     Dosage: 5 mg 1 daily 
5 to 10 yrs approx.

REACTIONS (2)
  - Muscular weakness [None]
  - Pain in extremity [None]
